FAERS Safety Report 4836965-3 (Version None)
Quarter: 2005Q4

REPORT INFORMATION
  Report Type: 
  Country: None (occurrence: None)
  Receive Date: 20051121
  Receipt Date: 20051110
  Transmission Date: 20060501
  Serious: No
  Sender: FDA-Public Use
  Company Number: 2005-10-1175

PATIENT
  Age: 27 Year
  Sex: Male
  Weight: 53 kg

DRUGS (2)
  1. REBETOL [Suspect]
     Indication: HEPATITIS VIRAL
     Dosage: 1 GM QD ORAL
     Route: 048
     Dates: start: 20050412
  2. PEGASYS [Suspect]
     Indication: HEPATITIS VIRAL
     Dosage: 180 MCG QWK SUBCUTANEOUS
     Route: 058
     Dates: start: 20050412

REACTIONS (5)
  - BLOOD THYROID STIMULATING HORMONE DECREASED [None]
  - GRANULOCYTOPENIA [None]
  - LEUKOPENIA [None]
  - THROMBOCYTOPENIA [None]
  - THYROID DISORDER [None]
